FAERS Safety Report 5106842-1 (Version None)
Quarter: 2006Q3

REPORT INFORMATION
  Report Type: 
  Country: None (occurrence: None)
  Receive Date: 20060912
  Receipt Date: 20060901
  Transmission Date: 20061208
  Serious: Yes (Death)
  Sender: FDA-Public Use
  Company Number: TCI2006A02811

PATIENT
  Age: 90 Year
  Sex: Female

DRUGS (3)
  1. LANSOPRAZOLE [Suspect]
     Dosage: 15 MG (15 MG, 1 IN 1 D) PER ORAL
     Route: 048
     Dates: end: 20060706
  2. ALOSITOL (ALLOPURINOL) (TABLETS) [Suspect]
     Dosage: 100 MG (100 MG, 1 IN 1 D) PER ORAL
     Route: 048
     Dates: start: 20060609, end: 20060619
  3. LASIX [Concomitant]

REACTIONS (4)
  - DERMATITIS EXFOLIATIVE [None]
  - DRUG ERUPTION [None]
  - FEMORAL NECK FRACTURE [None]
  - MULTI-ORGAN FAILURE [None]
